FAERS Safety Report 4697400-1 (Version None)
Quarter: 2005Q2

REPORT INFORMATION
  Report Type: 
  Country: None (occurrence: None)
  Receive Date: 20050621
  Receipt Date: 20050603
  Transmission Date: 20051028
  Serious: Yes (Hospitalization, Other)
  Sender: FDA-Public Use
  Company Number: USA050699735

PATIENT
  Age: 65 Year
  Sex: Female

DRUGS (4)
  1. HUMULIN N [Suspect]
     Indication: DIABETES MELLITUS
     Dates: start: 19950101
  2. HUMULIN R [Suspect]
     Indication: DIABETES MELLITUS
     Dates: start: 19950101, end: 20050501
  3. NOVO (INSULIN ASPART) [Concomitant]
  4. LANTUS [Concomitant]

REACTIONS (10)
  - AMMONIA INCREASED [None]
  - ASTHENIA [None]
  - BLOOD GLUCOSE INCREASED [None]
  - CARDIAC DISORDER [None]
  - CONDITION AGGRAVATED [None]
  - CONVULSION [None]
  - LIVER DISORDER [None]
  - MEMORY IMPAIRMENT [None]
  - RENAL DISORDER [None]
  - TREMOR [None]
